FAERS Safety Report 11633861 (Version 2)
Quarter: 2015Q4

REPORT INFORMATION
  Report Type: Spontaneous
  Country: US (occurrence: US)
  Receive Date: 20151015
  Receipt Date: 20151113
  Transmission Date: 20160304
  Serious: Yes (Death)
  Sender: FDA-Public Use
  Company Number: US-B.I. PHARMACEUTICALS,INC./RIDGEFIELD-2015-BI-56144BP

PATIENT
  Age: 72 Year
  Sex: Male
  Weight: 52 kg

DRUGS (7)
  1. SPIRIVA [Suspect]
     Active Substance: TIOTROPIUM BROMIDE MONOHYDRATE
     Indication: CHRONIC OBSTRUCTIVE PULMONARY DISEASE
     Dosage: 18 MCG
     Route: 055
     Dates: start: 201401
  2. XANAX [Concomitant]
     Active Substance: ALPRAZOLAM
     Indication: NERVOUSNESS
     Route: 048
  3. LEVOTHYROXINE. [Concomitant]
     Active Substance: LEVOTHYROXINE
     Indication: THYROID DISORDER
     Dosage: 88 MCG
     Route: 048
     Dates: start: 1995
  4. ADVAIR HFA [Concomitant]
     Active Substance: FLUTICASONE PROPIONATE\SALMETEROL XINAFOATE
     Indication: CHRONIC OBSTRUCTIVE PULMONARY DISEASE
     Route: 055
     Dates: start: 2012
  5. LORAZEPAM. [Concomitant]
     Active Substance: LORAZEPAM
     Indication: HEART RATE IRREGULAR
     Route: 048
     Dates: start: 2011
  6. LORAZEPAM. [Concomitant]
     Active Substance: LORAZEPAM
     Indication: CARDIAC FAILURE CONGESTIVE
  7. XANAX [Concomitant]
     Active Substance: ALPRAZOLAM
     Indication: RESTLESSNESS

REACTIONS (1)
  - Death [Fatal]

NARRATIVE: CASE EVENT DATE: 20150928
